FAERS Safety Report 8399228-8 (Version None)
Quarter: 2012Q2

REPORT INFORMATION
  Report Type: 
  Country: None (occurrence: None)
  Receive Date: 20120323
  Receipt Date: 20110613
  Transmission Date: 20120825
  Serious: Yes (Hospitalization)
  Sender: FDA-Public Use
  Company Number: 163-21880-11061711

PATIENT
  Age: 64 Year
  Sex: Male

DRUGS (12)
  1. ACYCLOVIR [Concomitant]
  2. COLACE (DOCUSATE SODIUM) [Concomitant]
  3. OMEPRAZOLE [Concomitant]
  4. CLONAZEPAM [Concomitant]
  5. DECADRON [Concomitant]
  6. MULTAQ [Concomitant]
  7. VALCADE (BORTEZOMIB) [Concomitant]
  8. WARFARIN SODIUM [Concomitant]
  9. PROZAC [Concomitant]
  10. MULTIVITAMIN [Concomitant]
  11. REVLIMID [Suspect]
     Indication: MULTIPLE MYELOMA
     Dosage: 15 MG, X 14 DAYS, PO,10 MG, X 21 DAYS, PO
     Route: 048
     Dates: start: 20110114, end: 20110308
  12. REVLIMID [Suspect]
     Indication: MULTIPLE MYELOMA
     Dosage: 15 MG, X 14 DAYS, PO,10 MG, X 21 DAYS, PO
     Route: 048
     Dates: start: 20110308

REACTIONS (3)
  - WHITE BLOOD CELL COUNT DECREASED [None]
  - PLATELET COUNT DECREASED [None]
  - RESPIRATORY TRACT INFECTION [None]
